FAERS Safety Report 10280682 (Version 1)
Quarter: 2014Q3

REPORT INFORMATION
  Report Type: Spontaneous
  Country: GB (occurrence: None)
  Receive Date: 20140702
  Receipt Date: 20140702
  Transmission Date: 20150326
  Serious: Yes (Hospitalization, Disabling, Other)
  Sender: FDA-Public Use
  Company Number: AUR-APL-2014-07005

PATIENT
  Age: 65 Year
  Sex: Male
  Weight: 88.9 kg

DRUGS (6)
  1. MUCODYNE (CARBOCISTEINE) [Concomitant]
     Active Substance: CARBOCYSTEINE
  2. LISINOPRIL (LISINOPRIL) [Concomitant]
     Active Substance: LISINOPRIL
  3. ALLOPURINOL (ALLOPURINOL) [Concomitant]
     Active Substance: ALLOPURINOL
  4. CIPROFLOXACIN. [Suspect]
     Active Substance: CIPROFLOXACIN
     Indication: PRODUCT USED FOR UNKNOWN INDICATION
     Route: 048
     Dates: start: 20140429, end: 20140501
  5. BENDROFLUMETHIAZIDE (BENDROFLUMETHIAZIDE) [Concomitant]
     Active Substance: BENDROFLUMETHIAZIDE
  6. SALBUTAMOL (SALBUTAMOL) [Concomitant]
     Active Substance: ALBUTEROL

REACTIONS (17)
  - Tremor [None]
  - Hallucination [None]
  - Fatigue [None]
  - Disorientation [None]
  - Delusion [None]
  - Dizziness [None]
  - Memory impairment [None]
  - Temperature intolerance [None]
  - Ataxia [None]
  - Sweat gland disorder [None]
  - Chromaturia [None]
  - Diplopia [None]
  - Balance disorder [None]
  - Convulsion [None]
  - Amnesia [None]
  - Dyspnoea [None]
  - Anxiety [None]

NARRATIVE: CASE EVENT DATE: 20140429
